FAERS Safety Report 20124848 (Version 1)
Quarter: 2021Q4

REPORT INFORMATION
  Report Type: Spontaneous
  Country: US (occurrence: US)
  Receive Date: 20211129
  Receipt Date: 20211129
  Transmission Date: 20220303
  Serious: No
  Sender: FDA-Public Use
  Company Number: US-ELI_LILLY_AND_COMPANY-US202111006855

PATIENT
  Sex: Female

DRUGS (5)
  1. INSULIN LISPRO [Suspect]
     Active Substance: INSULIN LISPRO
     Indication: Type 2 diabetes mellitus
     Dosage: 15 U, TID
     Route: 058
     Dates: start: 202108
  2. HUMULIN R [Suspect]
     Active Substance: INSULIN HUMAN
     Indication: Type 2 diabetes mellitus
     Dosage: 25 U, EACH MORNING
     Route: 058
     Dates: start: 2018
  3. HUMULIN R [Suspect]
     Active Substance: INSULIN HUMAN
     Dosage: 25 U, PRN
     Route: 058
     Dates: start: 2018
  4. TRULICITY [Suspect]
     Active Substance: DULAGLUTIDE
     Indication: Type 2 diabetes mellitus
     Dosage: 1.5 MG, WEEKLY (1/W)
     Route: 058
     Dates: start: 2020
  5. TOUJEO [Concomitant]
     Active Substance: INSULIN GLARGINE
     Indication: Type 2 diabetes mellitus
     Dosage: 70 U

REACTIONS (3)
  - Blood glucose abnormal [Recovered/Resolved]
  - Incorrect dose administered [Unknown]
  - Drug ineffective [Unknown]
